FAERS Safety Report 9838175 (Version 2)
Quarter: 2014Q1

REPORT INFORMATION
  Report Type: Spontaneous
  Country: FR (occurrence: FR)
  Receive Date: 20140123
  Receipt Date: 20140214
  Transmission Date: 20141002
  Serious: Yes (Hospitalization)
  Sender: FDA-Public Use
  Company Number: US-ASTRAZENECA-2014SE04553

PATIENT
  Age: 73 Year
  Sex: Male
  Weight: 70.3 kg

DRUGS (5)
  1. KENZEN [Suspect]
     Indication: HYPERTENSION
     Route: 048
     Dates: end: 20131211
  2. TERALITHE [Interacting]
     Indication: BIPOLAR I DISORDER
     Dosage: 500MG (250MG), QD
     Route: 048
     Dates: start: 1988, end: 20131208
  3. XANAX [Concomitant]
     Route: 048
  4. SYMBICORT [Concomitant]
     Dosage: 200 MCG, BID
     Route: 065
  5. STILONOX [Concomitant]
     Route: 048
     Dates: end: 20131211

REACTIONS (3)
  - Drug interaction [Recovered/Resolved]
  - Toxic encephalopathy [Recovered/Resolved]
  - Nephrogenic diabetes insipidus [Recovering/Resolving]
